FAERS Safety Report 9159681 (Version 2)
Quarter: 2013Q1

REPORT INFORMATION
  Report Type: Spontaneous
  Country: IT (occurrence: None)
  Receive Date: 20130219
  Receipt Date: 20130301
  Transmission Date: 20140127
  Serious: Yes (Hospitalization, Other)
  Sender: FDA-Public Use
  Company Number: 2013DEPIT00464

PATIENT
  Age: 7 Year
  Sex: Male

DRUGS (5)
  1. DEPOCYT [Suspect]
     Indication: METASTASES TO MENINGES
     Dosage: 50 MG, CYCLIC, EVERY 14 DAYS, INTRATHECAL
     Route: 037
     Dates: start: 20121217, end: 20130201
  2. DEPOCYT [Suspect]
     Indication: METASTASES TO MENINGES
     Dosage: 50 MG, CYCLIC, EVERY 14 DAYS, INTRATHECAL
     Route: 037
     Dates: start: 20121217, end: 20130201
  3. MEPRAL (OMEPRAZOLE) [Concomitant]
  4. SOLDESAM (DEXAMETHASONE SODIUM PHOSPHATE) [Concomitant]
  5. GARDENALE (PHENOBARBITAL SODIUM) [Concomitant]

REACTIONS (9)
  - Meningitis [None]
  - Gamma-glutamyltransferase increased [None]
  - Pyrexia [None]
  - Toxicity to various agents [None]
  - Nuchal rigidity [None]
  - Headache [None]
  - Vomiting [None]
  - CSF glucose abnormal [None]
  - CSF protein abnormal [None]
